FAERS Safety Report 7341996-8 (Version None)
Quarter: 2011Q1

REPORT INFORMATION
  Report Type: 
  Country: None (occurrence: None)
  Receive Date: 20110309
  Receipt Date: 20110211
  Transmission Date: 20110831
  Serious: No
  Sender: FDA-Public Use
  Company Number: US-B.I. PHARMACEUTICALS,INC./RIDGEFIELD-2011-BP-05958BP

PATIENT
  Sex: Female

DRUGS (11)
  1. PRADAXA [Suspect]
     Indication: ANTICOAGULANT THERAPY
  2. SIMVASTATIN [Concomitant]
     Indication: BLOOD CHOLESTEROL INCREASED
  3. LEVOTHYROXINE [Concomitant]
     Indication: HYPOTHYROIDISM
  4. FOLIC ACID [Concomitant]
     Indication: PROPHYLAXIS
  5. POTASSIUM [Concomitant]
     Indication: PROPHYLAXIS
  6. FUROSEMIDE [Concomitant]
     Indication: FLUID RETENTION
  7. PRADAXA [Suspect]
     Indication: ATRIAL FIBRILLATION
     Dosage: 300 MG
     Route: 048
     Dates: start: 20110202, end: 20110211
  8. IRON [Concomitant]
     Indication: PROPHYLAXIS
  9. ACIPHEX [Concomitant]
     Indication: HIATUS HERNIA
  10. TOPROL-XL [Concomitant]
     Indication: CARDIAC DISORDER
  11. TORSEMIDE [Concomitant]
     Indication: FLUID RETENTION
     Dosage: 20 MG
     Route: 048

REACTIONS (3)
  - WEIGHT INCREASED [None]
  - HAEMORRHOIDAL HAEMORRHAGE [None]
  - RECTAL HAEMORRHAGE [None]
